FAERS Safety Report 7295329-6 (Version None)
Quarter: 2011Q1

REPORT INFORMATION
  Report Type: 
  Country: None (occurrence: None)
  Receive Date: 20110203
  Receipt Date: 20110119
  Transmission Date: 20110831
  Serious: No
  Sender: FDA-Public Use
  Company Number: 2011-00022

PATIENT
  Age: 71 Year
  Sex: Female
  Weight: 68.0396 kg

DRUGS (8)
  1. OSTEOBIFLEX [Concomitant]
  2. HYDROCHLOROTHIAZIDE [Concomitant]
  3. ZICAM COLD REMEDY NASAL GEL [Suspect]
     Dosage: SPORADIC
  4. ZOCOR [Concomitant]
  5. CALCIUM W/ VITAMIN D [Concomitant]
  6. DIOVAN HCT [Concomitant]
  7. TOPROL-XL [Concomitant]
  8. FISH OIL [Concomitant]

REACTIONS (1)
  - HYPOSMIA [None]
